FAERS Safety Report 10048382 (Version 1)
Quarter: 2014Q1

REPORT INFORMATION
  Report Type: Report from Study
  Country: FR (occurrence: FR)
  Receive Date: 20140331
  Receipt Date: 20140331
  Transmission Date: 20141002
  Serious: Yes (Death, Life-Threatening)
  Sender: FDA-Public Use
  Company Number: FR-GLAXOSMITHKLINE-Z0017816A

PATIENT
  Age: 65 Year
  Sex: Male
  Weight: 49 kg

DRUGS (9)
  1. DABRAFENIB [Suspect]
     Indication: NON-SMALL CELL LUNG CANCER
     Route: 048
     Dates: start: 20121114, end: 20121126
  2. FONDAPARINUX SODIUM [Concomitant]
     Indication: JUGULAR VEIN THROMBOSIS
     Dosage: 7.5MG SINGLE DOSE
     Route: 058
     Dates: end: 20121126
  3. PREGABALIN [Concomitant]
     Indication: PAIN
     Dosage: 75MG TWICE PER DAY
     Route: 048
     Dates: start: 20121109, end: 20121112
  4. MORPHINE SULPHATE [Concomitant]
     Indication: PAIN
     Dosage: 10MG TWICE PER DAY
     Route: 048
  5. MORPHINE SULFATE [Concomitant]
     Indication: PAIN
     Dosage: 30MG TWICE PER DAY
     Route: 048
  6. PREGABALIN [Concomitant]
     Indication: PAIN
     Dosage: 100MG TWICE PER DAY
     Route: 048
     Dates: start: 20121112, end: 20121116
  7. PERFALGAN [Concomitant]
     Indication: PAIN
     Dosage: 1G THREE TIMES PER DAY
     Route: 042
     Dates: start: 20121105
  8. TAZOCILLINE [Concomitant]
     Dates: start: 20121115, end: 20121124
  9. DIFFU-K [Concomitant]
     Indication: HYPOKALAEMIA
     Dosage: 600MG THREE TIMES PER DAY
     Route: 048
     Dates: start: 20121120, end: 20121127

REACTIONS (1)
  - Haemorrhage intracranial [Fatal]
